FAERS Safety Report 8538439-5 (Version None)
Quarter: 2012Q3

REPORT INFORMATION
  Report Type: 
  Country: None (occurrence: None)
  Receive Date: 20120712
  Receipt Date: 20120626
  Transmission Date: 20120928
  Serious: Yes (Hospitalization)
  Sender: FDA-Public Use
  Company Number: 2012-00994

PATIENT
  Age: 83 Year
  Sex: Female

DRUGS (11)
  1. PRAVASTATIN SODIUM [Suspect]
     Indication: PRODUCT USED FOR UNKNOWN INDICATION
     Dosage: 5 MG (5 MG, ONE TABLET AFTER DINNER)
     Dates: end: 20120610
  2. BETAHISTINE (MERISLON) [Concomitant]
  3. MAGNESIUM OXIDE (MAGLAX  330) [Concomitant]
  4. DINEPEZIL 5 [Concomitant]
  5. ITOPRIDE (GANATON) (TABLETS) [Suspect]
     Indication: PRODUCT USED FOR UNKNOWN INDICATION
     Dosage: 3 DOSAGE FORMS (1 DOSAGE FORMS, THREE TABLETS AFTER FOOD)
     Dates: end: 20100610
  6. ADENOSINE TRIPHOSPHATE (ADETPHOS KOWA 10%) [Concomitant]
  7. RESTAS 2 [Concomitant]
  8. LEVOTHYROXINE (THYRADIN S25) [Concomitant]
  9. MAPROTILINE (LUDIOMIL) [Concomitant]
  10. ASPIRIN + DIHYDROXYALUMINUM AMINOACETATE + MAGNESIUM CARBONATE (BUFFER [Suspect]
     Indication: PRODUCT USED FOR UNKNOWN INDICATION
     Dosage: 1 DOSAGE FORMS (1 DOAGE FORMS, ONE TABLET AFTER BREAKFAST)
     Dates: end: 20120610
  11. GASAOL 40 (TABLETS [Suspect]
     Indication: PRODUCT USED FOR UNKNOWN INDICATION
     Dosage: 2 DOAGE FORMS (1 DOSAGE FORMS, ONE TABLET AT BREAKFAST + ONE AT DINNER)
     Dates: end: 20120610

REACTIONS (3)
  - ALANINE AMINOTRANSFERASE INCREASED [None]
  - LIVER DISORDER [None]
  - ASPARTATE AMINOTRANSFERASE INCREASED [None]
